FAERS Safety Report 17139375 (Version 1)
Quarter: 2019Q4

REPORT INFORMATION
  Report Type: Spontaneous
  Country: DK (occurrence: DK)
  Receive Date: 20191211
  Receipt Date: 20191211
  Transmission Date: 20200122
  Serious: Yes (Disabling)
  Sender: FDA-Public Use
  Company Number: DK-ACCORD-164652

PATIENT
  Age: 67 Year
  Sex: Female

DRUGS (2)
  1. FASLODEX [Concomitant]
     Active Substance: FULVESTRANT
     Indication: BREAST CANCER
     Dosage: STRENGTH: 250 MG/5 ML. DOSE: UNKNOWN
     Route: 030
     Dates: start: 2014
  2. ZOLEDRONIC ACID [Suspect]
     Active Substance: ZOLEDRONIC ACID
     Indication: METASTASES TO BONE
     Dosage: STRENGTH: UNKNOWN. DOSE: VARYING
     Route: 042
     Dates: start: 20111227, end: 20190328

REACTIONS (4)
  - Sequestrectomy [Recovered/Resolved]
  - Loose tooth [Recovered/Resolved]
  - Tooth extraction [Recovered/Resolved]
  - Osteonecrosis of jaw [Unknown]

NARRATIVE: CASE EVENT DATE: 2014
